FAERS Safety Report 14994033 (Version 1)
Quarter: 2018Q2

REPORT INFORMATION
  Report Type: Spontaneous
  Country: US (occurrence: US)
  Receive Date: 20180611
  Receipt Date: 20180611
  Transmission Date: 20180711
  Serious: No
  Sender: FDA-Public Use
  Company Number: US-ASTRAZENECA-2018SE75052

PATIENT
  Sex: Female

DRUGS (2)
  1. ZYRTEC [Concomitant]
     Active Substance: CETIRIZINE HYDROCHLORIDE
     Indication: PRODUCT USED FOR UNKNOWN INDICATION
     Dosage: DOSAGE FORM: UNSPECIFIED, IN THE EVENING
  2. RHINOCORT [Suspect]
     Active Substance: BUDESONIDE
     Indication: MULTIPLE ALLERGIES
     Route: 045

REACTIONS (2)
  - Throat irritation [Recovered/Resolved]
  - Wrong technique in product usage process [Unknown]
